FAERS Safety Report 16235179 (Version 1)
Quarter: 2019Q2

REPORT INFORMATION
  Report Type: Spontaneous
  Country: US (occurrence: US)
  Receive Date: 20190320
  Receipt Date: 20190320
  Transmission Date: 20190711
  Serious: No
  Sender: FDA-Public Use
  Company Number: None

PATIENT
  Age: 56 Year
  Sex: Male

DRUGS (1)
  1. EXTAVIA [Suspect]
     Active Substance: INTERFERON BETA-1B
     Dosage: ?          OTHER FREQUENCY:OTHER;?
     Route: 058
     Dates: start: 1994

REACTIONS (2)
  - Flushing [None]
  - Pyrexia [None]

NARRATIVE: CASE EVENT DATE: 20190320
